FAERS Safety Report 10101361 (Version 1)
Quarter: 2014Q2

REPORT INFORMATION
  Report Type: Spontaneous
  Country: US (occurrence: US)
  Receive Date: 20140424
  Receipt Date: 20140424
  Transmission Date: 20141212
  Serious: No
  Sender: FDA-Public Use
  Company Number: US-PFIZER INC-2014112562

PATIENT
  Sex: Female

DRUGS (7)
  1. NEURONTIN [Suspect]
     Indication: FIBROMYALGIA
     Dosage: UNK
  2. SUMATRIPTAN SUCCINATE [Suspect]
     Dosage: UNK
  3. NAPROXEN SODIUM [Suspect]
     Dosage: AS NEEDED
  4. TREXIMET [Suspect]
     Dosage: UNK
  5. LORTAB [Suspect]
     Dosage: AS NEEDED
  6. CLONAZEPAM [Suspect]
     Dosage: UNK
  7. TORADOL [Suspect]
     Dosage: UNK

REACTIONS (3)
  - Memory impairment [Unknown]
  - Abnormal dreams [Unknown]
  - Sleep talking [Unknown]
